FAERS Safety Report 16200633 (Version 1)
Quarter: 2019Q2

REPORT INFORMATION
  Report Type: Spontaneous
  Country: FR (occurrence: FR)
  Receive Date: 20190416
  Receipt Date: 20190416
  Transmission Date: 20190711
  Serious: Yes (Hospitalization)
  Sender: FDA-Public Use
  Company Number: FR-TEVA-2019-FR-1037107

PATIENT
  Age: 50 Year
  Sex: Female

DRUGS (11)
  1. LYRICA [Suspect]
     Active Substance: PREGABALIN
     Indication: INTERVERTEBRAL DISC PROTRUSION
     Dosage: 3 DOSAGE FORMS DAILY; UNK MG, 1X/DAY
     Route: 048
     Dates: start: 20080702, end: 20080705
  2. NEXEN [Suspect]
     Active Substance: NIMESULIDE
     Indication: INTERVERTEBRAL DISC PROTRUSION
     Dosage: 100 MILLIGRAM DAILY; 100 MG, 1X/DAY
     Route: 048
     Dates: start: 20080702, end: 20080705
  3. OMEPRAZOLE. [Suspect]
     Active Substance: OMEPRAZOLE
     Indication: PROPHYLAXIS
     Dosage: 1 DOSAGE FORMS DAILY;
     Route: 048
     Dates: start: 20080528, end: 20080628
  4. MYOLASTAN [Suspect]
     Active Substance: TETRAZEPAM
     Indication: INTERVERTEBRAL DISC PROTRUSION
     Dosage: 1 DOSAGE FORMS DAILY;
     Route: 048
     Dates: start: 20080528, end: 20080705
  5. CORTANCYL [Suspect]
     Active Substance: PREDNISONE
     Indication: INTERVERTEBRAL DISC PROTRUSION
     Dosage: 20 MILLIGRAM DAILY;
     Route: 048
     Dates: start: 20080622, end: 20080630
  6. CONTRAMAL [Concomitant]
     Active Substance: TRAMADOL HYDROCHLORIDE
     Indication: CERVICOBRACHIAL SYNDROME
     Dates: start: 20080609, end: 20080619
  7. MILLEPERTUIS [Suspect]
     Active Substance: HYPERICUM PERFORATUM
     Dosage: 1 DOSAGE FORMS DAILY;
     Dates: start: 20080528, end: 20080628
  8. DI-ANTALVIC [Concomitant]
     Active Substance: ACETAMINOPHEN\PROPOXYPHENE HYDROCHLORIDE
     Indication: CERVICOBRACHIAL SYNDROME
     Dates: start: 20080606, end: 20080615
  9. DOLIPRANE [Concomitant]
     Active Substance: ACETAMINOPHEN
     Indication: CERVICOBRACHIAL SYNDROME
     Dates: start: 20080617, end: 20080627
  10. BI-PROFENID [Concomitant]
     Active Substance: KETOPROFEN
     Indication: CERVICOBRACHIAL SYNDROME
     Dates: start: 20080528, end: 20080604
  11. INEXIUM [Suspect]
     Active Substance: ESOMEPRAZOLE
     Indication: PROPHYLAXIS
     Dosage: 1 DOSAGE FORMS DAILY;
     Route: 048
     Dates: start: 20080628, end: 20080705

REACTIONS (1)
  - Rash maculo-papular [Recovered/Resolved]

NARRATIVE: CASE EVENT DATE: 20080704
